FAERS Safety Report 20051097 (Version 1)
Quarter: 2021Q4

REPORT INFORMATION
  Report Type: Spontaneous
  Country: None (occurrence: CA)
  Receive Date: 20211110
  Receipt Date: 20211110
  Transmission Date: 20220303
  Serious: Yes (Hospitalization)
  Sender: FDA-Public Use
  Company Number: CA-AKCEA THERAPEUTICS, INC.-2021IS001829

PATIENT
  Age: 60 Year
  Sex: Female
  Weight: 35 kg

DRUGS (13)
  1. TEGSEDI [Suspect]
     Active Substance: INOTERSEN SODIUM
     Indication: Hereditary neuropathic amyloidosis
     Route: 058
  2. DEVICE [Suspect]
     Active Substance: DEVICE
  3. MACROBID [Suspect]
     Active Substance: NITROFURANTOIN\NITROFURANTOIN MONOHYDRATE
     Route: 065
  4. PEPTO-BISMOL [Suspect]
     Active Substance: BISMUTH SUBSALICYLATE
     Route: 065
  5. ASCORBIC ACID [Concomitant]
     Active Substance: ASCORBIC ACID
     Route: 065
  6. CLARITIN [Concomitant]
     Active Substance: LORATADINE
     Route: 065
  7. BISACODYL [Concomitant]
     Active Substance: BISACODYL
     Route: 065
  8. MIDODRINE [Concomitant]
     Active Substance: MIDODRINE
     Route: 048
  9. MIDODRINE [Concomitant]
     Active Substance: MIDODRINE
     Route: 048
  10. MIDODRINE [Concomitant]
     Active Substance: MIDODRINE
     Route: 048
  11. MIDODRINE [Concomitant]
     Active Substance: MIDODRINE
     Route: 048
  12. VAGISIL /00104701/ [Concomitant]
     Route: 065
  13. VENIXXA [Concomitant]
     Route: 065

REACTIONS (25)
  - Abdominal distension [Not Recovered/Not Resolved]
  - Adverse drug reaction [Not Recovered/Not Resolved]
  - Asthenia [Not Recovered/Not Resolved]
  - Blood pressure decreased [Not Recovered/Not Resolved]
  - Blood pressure increased [Not Recovered/Not Resolved]
  - Constipation [Not Recovered/Not Resolved]
  - Diarrhoea [Not Recovered/Not Resolved]
  - Disturbance in attention [Not Recovered/Not Resolved]
  - Dizziness [Not Recovered/Not Resolved]
  - Faeces discoloured [Not Recovered/Not Resolved]
  - Fatigue [Not Recovered/Not Resolved]
  - Flatulence [Not Recovered/Not Resolved]
  - Gastrointestinal disorder [Not Recovered/Not Resolved]
  - Headache [Not Recovered/Not Resolved]
  - Heart rate increased [Not Recovered/Not Resolved]
  - Irritable bowel syndrome [Not Recovered/Not Resolved]
  - Malaise [Not Recovered/Not Resolved]
  - Nausea [Not Recovered/Not Resolved]
  - Pain [Not Recovered/Not Resolved]
  - Periorbital swelling [Not Recovered/Not Resolved]
  - Renal mass [Not Recovered/Not Resolved]
  - Staphylococcal infection [Not Recovered/Not Resolved]
  - Thrombosis [Not Recovered/Not Resolved]
  - Tongue discolouration [Not Recovered/Not Resolved]
  - Urinary tract infection [Not Recovered/Not Resolved]
